FAERS Safety Report 19063942 (Version 1)
Quarter: 2021Q1

REPORT INFORMATION
  Report Type: Spontaneous
  Country: DE (occurrence: DE)
  Receive Date: 20210326
  Receipt Date: 20210326
  Transmission Date: 20210420
  Serious: Yes (Hospitalization)
  Sender: FDA-Public Use
  Company Number: DE-TEVA-2021-DE-1896607

PATIENT
  Age: 76 Year
  Sex: Male

DRUGS (12)
  1. ONDANSETRON [Concomitant]
     Active Substance: ONDANSETRON
     Dosage: 8 MG, AS NEEDED
  2. METOCLOPRAMID [Concomitant]
     Active Substance: METOCLOPRAMIDE
     Dosage: 10 MG, AS NEEDED
  3. PYRIDOXIN [Concomitant]
     Active Substance: PYRIDOXINE
     Dosage: 1 DOSAGE FORMS DAILY; 1?0?0?0
  4. SIMVASTATIN. [Concomitant]
     Active Substance: SIMVASTATIN
     Dosage: 20 MILLIGRAM DAILY; 20 MG, 0?0?1?0
  5. VINCRISTIN [Suspect]
     Active Substance: VINCRISTINE
     Dosage: 1.5 MG
     Route: 042
  6. TAMSULOSIN [Concomitant]
     Active Substance: TAMSULOSIN
     Dosage: .4 MILLIGRAM DAILY; 0.4 MG, 0?0?1?0
  7. COLECALCIFEROL [Concomitant]
     Active Substance: CHOLECALCIFEROL
     Dosage: 1000 IU (INTERNATIONAL UNIT) DAILY; 1000 IU, 1?0?0?0
  8. CYCLOPHOSPHAMID [Suspect]
     Active Substance: CYCLOPHOSPHAMIDE
     Dosage: 1500 MG
     Route: 042
  9. SPIRONOLACTON [Concomitant]
     Active Substance: SPIRONOLACTONE
     Dosage: 25 MILLIGRAM DAILY; 25 MG, 1?0?0?0
  10. PANTOPRAZOL [Concomitant]
     Active Substance: PANTOPRAZOLE SODIUM
     Dosage: 40 MILLIGRAM DAILY; 40 MG, 1?0?0?0
  11. ADRIAMYCIN [Suspect]
     Active Substance: DOXORUBICIN HYDROCHLORIDE
     Dosage: 120 MG
     Route: 042
  12. TINZAPARIN [Concomitant]
     Active Substance: TINZAPARIN
     Dosage: 16000 IU (INTERNATIONAL UNIT) DAILY; 16000 IU, 1?0?0?0
     Route: 058

REACTIONS (2)
  - Pain [Unknown]
  - General physical health deterioration [Unknown]
